FAERS Safety Report 24956161 (Version 3)
Quarter: 2025Q4

REPORT INFORMATION
  Report Type: Spontaneous
  Country: CM (occurrence: CM)
  Receive Date: 20250211
  Receipt Date: 20251209
  Transmission Date: 20260119
  Serious: Yes (Life-Threatening, Hospitalization)
  Sender: BAUSCH AND LOMB
  Company Number: CM-BAUSCH-BL-2025-001697

PATIENT
  Age: 29 Year
  Sex: Male

DRUGS (2)
  1. DEXAMETHASONE [Suspect]
     Active Substance: DEXAMETHASONE
     Indication: Skin ulcer
     Route: 065
  2. DICLOFENAC [Suspect]
     Active Substance: DICLOFENAC
     Indication: Skin ulcer
     Route: 065

REACTIONS (3)
  - Shock haemorrhagic [Recovered/Resolved]
  - Duodenal ulcer perforation [Recovered/Resolved]
  - Upper gastrointestinal haemorrhage [Recovered/Resolved]
